FAERS Safety Report 14790364 (Version 8)
Quarter: 2022Q1

REPORT INFORMATION
  Report Type: Report from Study
  Country: ES (occurrence: None)
  Receive Date: 20180423
  Receipt Date: 20220130
  Transmission Date: 20220423
  Serious: Yes (Hospitalization)
  Sender: FDA-Public Use
  Company Number: ES-ROCHE-2107958

PATIENT
  Age: 74 Year
  Sex: Female
  Weight: 75.3 kg

DRUGS (21)
  1. POLATUZUMAB VEDOTIN [Suspect]
     Active Substance: POLATUZUMAB VEDOTIN
     Indication: Follicular lymphoma
     Dosage: 1.4 OR 1.8 MG/KG ON DAY 1 OF EACH 28-DAY CYCLE FOR UP TO 6 MONTHS?DATE OF MOST RECENT DOSE OF POLATU
     Route: 042
     Dates: start: 20180219
  2. OBINUTUZUMAB [Suspect]
     Active Substance: OBINUTUZUMAB
     Indication: Follicular lymphoma
     Dosage: ON DAYS 1, 8 AND 15 OF CYCLE 1 AND ON DAY 1 OF CYCLES 2 TO 6 ?DATE OF MOST RECENT DOSE OF OBINUTUZUM
     Route: 042
     Dates: start: 20180219
  3. LENALIDOMIDE [Suspect]
     Active Substance: LENALIDOMIDE
     Indication: Follicular lymphoma
     Dosage: 10, 15, OR 20 MG ON DAYS 1 TO 21 OF EACH 28-DAY CYCLE FOR UP TO 6 CYCLES?DATE OF MOST RECENT DOSE OF
     Route: 048
     Dates: start: 20180219
  4. OMEPRAZOLE [Concomitant]
     Active Substance: OMEPRAZOLE
     Dosage: GASTRIC PROTECTOR
     Dates: start: 20180216
  5. ALLOPURINOL [Concomitant]
     Active Substance: ALLOPURINOL
     Dosage: SLT PROPHYLAXIS
     Dates: start: 20180216
  6. ASPIRIN [Concomitant]
     Active Substance: ASPIRIN
     Dosage: PROPHYLAXIS LENALIDOMIDE
     Dates: start: 20180216
  7. ASPIRIN [Concomitant]
     Active Substance: ASPIRIN
     Dates: start: 20180410, end: 20180418
  8. ACETAMINOPHEN [Concomitant]
     Active Substance: ACETAMINOPHEN
     Indication: Pain prophylaxis
     Dates: start: 20180326, end: 20180418
  9. ACETAMINOPHEN [Concomitant]
     Active Substance: ACETAMINOPHEN
     Dates: start: 20180411, end: 20180418
  10. DEXCHLORPHENIRAMINE [Concomitant]
     Active Substance: DEXCHLORPHENIRAMINE
     Indication: Prophylaxis
     Dates: start: 20180409, end: 20180428
  11. DEXCHLORPHENIRAMINE [Concomitant]
     Active Substance: DEXCHLORPHENIRAMINE
     Route: 048
     Dates: start: 20180319, end: 20180319
  12. MEPERIDINE HYDROCHLORIDE [Concomitant]
     Active Substance: MEPERIDINE HYDROCHLORIDE
     Indication: Pain
     Dates: start: 20180411, end: 20180418
  13. NOLOTIL [Concomitant]
     Indication: Pain
     Dates: start: 20180412, end: 20180418
  14. DUPHALAC (SPAIN) [Concomitant]
     Indication: Constipation
     Dates: start: 20180411, end: 20180411
  15. DUPHALAC (SPAIN) [Concomitant]
     Dates: start: 20180416, end: 20180418
  16. OMEPRAZOLE [Concomitant]
     Active Substance: OMEPRAZOLE
     Indication: Prophylaxis
     Dates: start: 20180410, end: 20180418
  17. CODEINE PHOSPHATE [Concomitant]
     Active Substance: CODEINE PHOSPHATE
     Indication: Cough
     Dates: start: 20180413, end: 20180418
  18. LORMETAZEPAM [Concomitant]
     Active Substance: LORMETAZEPAM
     Indication: Anxiety
     Dates: start: 20180412, end: 20180418
  19. ALPRAZOLAM [Concomitant]
     Active Substance: ALPRAZOLAM
     Indication: Anxiety
     Dates: start: 20180412, end: 20180418
  20. VORICONAZOLE [Concomitant]
     Active Substance: VORICONAZOLE
     Indication: Prophylaxis
     Dates: start: 20180412, end: 20180418
  21. DEXAMETHASONE [Concomitant]
     Active Substance: DEXAMETHASONE
     Route: 048
     Dates: start: 20180319, end: 20180319

REACTIONS (1)
  - Interstitial lung disease [Recovered/Resolved]

NARRATIVE: CASE EVENT DATE: 20180410
